FAERS Safety Report 6296126-0 (Version None)
Quarter: 2009Q3

REPORT INFORMATION
  Report Type: 
  Country: None (occurrence: None)
  Receive Date: 20090731
  Receipt Date: 20090724
  Transmission Date: 20100115
  Serious: Yes (Other)
  Sender: FDA-Public Use
  Company Number: 2009JP004490

PATIENT
  Age: 37 Year
  Sex: Male
  Weight: 48 kg

DRUGS (6)
  1. TACROLIMUS [Suspect]
     Indication: RENAL TRANSPLANT
     Dates: start: 20090302
  2. AZATHIOPRINE [Suspect]
     Dates: start: 20090401
  3. MYCOPHENOLATE MOFETIL [Suspect]
     Dates: start: 20090302, end: 20090401
  4. SULFAMETHOXAZOLE (SULFAMETHOXAZOLE) FORMULATION UNKNOWN [Suspect]
     Dates: start: 20090302, end: 20090401
  5. TRIMETOPRIM (TRIMETHOPRIM) FORMULATION UNKNOWN [Suspect]
     Dates: start: 20090302, end: 20090401
  6. ARANESP [Suspect]
     Indication: NEPHROGENIC ANAEMIA
     Dosage: 80 UG, WEEKLY, SUBCUTANEOUS
     Route: 058
     Dates: start: 20090302

REACTIONS (1)
  - APLASIA PURE RED CELL [None]
